FAERS Safety Report 17635918 (Version 1)
Quarter: 2020Q2

REPORT INFORMATION
  Report Type: Report from Study
  Country: CN (occurrence: CN)
  Receive Date: 20200407
  Receipt Date: 20200407
  Transmission Date: 20200713
  Serious: Yes (Other)
  Sender: FDA-Public Use
  Company Number: CN-ROCHE-2576952

PATIENT

DRUGS (2)
  1. OXALIPLATIN. [Suspect]
     Active Substance: OXALIPLATIN
     Indication: COLORECTAL CANCER
     Dosage: DAY 1
     Route: 042
  2. CAPECITABINE. [Suspect]
     Active Substance: CAPECITABINE
     Indication: COLORECTAL CANCER
     Dosage: DAY 1-14
     Route: 048

REACTIONS (10)
  - Blood creatinine abnormal [Unknown]
  - White blood cell count abnormal [Unknown]
  - Aspartate aminotransferase abnormal [Unknown]
  - Nausea [Unknown]
  - Vomiting [Unknown]
  - Diarrhoea [Unknown]
  - Haemoglobin abnormal [Unknown]
  - Alanine aminotransferase abnormal [Unknown]
  - Blood urea abnormal [Unknown]
  - Platelet count abnormal [Unknown]
